FAERS Safety Report 5011133-3 (Version None)
Quarter: 2006Q2

REPORT INFORMATION
  Report Type: 
  Country: None (occurrence: None)
  Receive Date: 20060525
  Receipt Date: 20060106
  Transmission Date: 20061013
  Serious: Yes (Hospitalization, Disabling)
  Sender: FDA-Public Use
  Company Number: 2006AP00120

PATIENT
  Age: 23576 Day
  Sex: Female

DRUGS (6)
  1. QUETIAPINE FUMARATE [Suspect]
     Indication: BIPOLAR I DISORDER
     Dosage: TITRATED DAILY
     Route: 048
     Dates: start: 20051130, end: 20060127
  2. LAMICTAL [Concomitant]
     Indication: ANTIDEPRESSANT THERAPY
     Dosage: OVER 3 MONTHS PRIOR TO STUDY START
     Route: 048
     Dates: end: 20051123
  3. SOLIAN [Concomitant]
     Indication: PSYCHOTIC DISORDER
     Dosage: OVER 3 MONTHS PRIOR TO STUDY START
     Route: 048
     Dates: end: 20051123
  4. SOLIAN [Concomitant]
     Indication: DEPRESSION
     Dosage: OVER 3 MONTHS PRIOR TO STUDY START
     Route: 048
     Dates: end: 20051123
  5. RIIVOTRIL [Concomitant]
     Indication: SEDATION
     Route: 048
     Dates: start: 20050829, end: 20051123
  6. RIIVOTRIL [Concomitant]
     Indication: ANTIDEPRESSANT THERAPY
     Route: 048
     Dates: start: 20050829, end: 20051123

REACTIONS (2)
  - ANOREXIA [None]
  - DEPRESSION [None]
